FAERS Safety Report 9626180 (Version 1)
Quarter: 2013Q4

REPORT INFORMATION
  Report Type: Spontaneous
  Country: US (occurrence: None)
  Receive Date: 20131015
  Receipt Date: 20131015
  Transmission Date: 20140711
  Serious: Yes (Other)
  Sender: FDA-Public Use
  Company Number: None

PATIENT
  Age: 60 Year
  Sex: Male
  Weight: 81.65 kg

DRUGS (2)
  1. HYDROCODONE/IBUPROFEN [Suspect]
     Indication: MIGRAINE
     Route: 048
  2. HYDROCODONE/IBUPROFEN [Suspect]
     Indication: BACK PAIN
     Route: 048

REACTIONS (2)
  - Product substitution issue [None]
  - Drug ineffective [None]
